FAERS Safety Report 24850700 (Version 3)
Quarter: 2025Q4

REPORT INFORMATION
  Report Type: Spontaneous
  Country: US (occurrence: US)
  Receive Date: 20250116
  Receipt Date: 20251117
  Transmission Date: 20260118
  Serious: Yes (Other)
  Sender: RADIUS PHARM
  Company Number: US-RADIUS HEALTH INC.-2025US000256

PATIENT
  Sex: Female

DRUGS (3)
  1. TYMLOS [Suspect]
     Active Substance: ABALOPARATIDE
     Indication: Product used for unknown indication
     Dosage: 20 MICROGRAM,QD  (2 CLICKS)
     Dates: start: 2024, end: 2024
  2. TYMLOS [Suspect]
     Active Substance: ABALOPARATIDE
     Dosage: INCREASE ONE CLICK WHEN NO SIDE EFFECTS FOR 3 DAYS
     Dates: start: 2024, end: 2024
  3. TYMLOS [Suspect]
     Active Substance: ABALOPARATIDE
     Dosage: 60 MICROGRAM QD (.60)
     Dates: start: 2024

REACTIONS (10)
  - Blood glucose decreased [Unknown]
  - Syncope [Unknown]
  - Headache [Unknown]
  - Dizziness [Unknown]
  - Nausea [Unknown]
  - Vomiting [Unknown]
  - Bone pain [Unknown]
  - Abdominal distension [Unknown]
  - Intentional product misuse [Unknown]
  - Product dose omission issue [Unknown]

NARRATIVE: CASE EVENT DATE: 20240101
